FAERS Safety Report 15807303 (Version 1)
Quarter: 2019Q1

REPORT INFORMATION
  Report Type: Spontaneous
  Country: CN (occurrence: CN)
  Receive Date: 20190110
  Receipt Date: 20190110
  Transmission Date: 20190417
  Serious: Yes (Other)
  Sender: FDA-Public Use
  Company Number: IND-CN-009507513-1901CHN001603

PATIENT
  Age: 48 Year
  Sex: Male
  Weight: 66 kg

DRUGS (5)
  1. ARCOXIA [Suspect]
     Active Substance: ETORICOXIB
     Indication: PHARYNGEAL INJURY
     Dosage: 60 MILLIGRAM, DAILY
     Route: 048
     Dates: start: 20180203, end: 20180207
  2. CEFTRIAXONE SODIUM. [Suspect]
     Active Substance: CEFTRIAXONE SODIUM
     Indication: WOUND INFECTION
     Dosage: 2 GRAM, DAILY
     Route: 041
     Dates: start: 20180203, end: 20180206
  3. SODIUM CHLORIDE. [Suspect]
     Active Substance: SODIUM CHLORIDE
     Indication: WOUND INFECTION
     Dosage: 100 MILLILITER, DAILY
     Route: 041
     Dates: start: 20180203, end: 20180206
  4. LAMIOPHLOMIS ROTATA [Suspect]
     Active Substance: HERBALS
     Indication: PHARYNGEAL INJURY
     Dosage: 0.78 GRAM, THREE TIMES A DAY
     Route: 048
     Dates: start: 20180203, end: 20180206
  5. JIE GU QI LI PIAN [Suspect]
     Active Substance: HERBALS
     Indication: PHARYNGEAL INJURY
     Dosage: 1.5 GRAM, TWICE DAILY
     Route: 048
     Dates: start: 20180203, end: 20180206

REACTIONS (3)
  - Pruritus [Recovered/Resolved]
  - Rash [Recovered/Resolved]
  - Skin warm [Recovered/Resolved]

NARRATIVE: CASE EVENT DATE: 20180206
